FAERS Safety Report 13741519 (Version 1)
Quarter: 2017Q3

REPORT INFORMATION
  Report Type: Spontaneous
  Country: US (occurrence: US)
  Receive Date: 20170711
  Receipt Date: 20170711
  Transmission Date: 20171127
  Serious: Yes (Hospitalization)
  Sender: FDA-Public Use
  Company Number: None

PATIENT
  Age: 16 Year
  Sex: Male
  Weight: 72 kg

DRUGS (1)
  1. ONCASPAR [Suspect]
     Active Substance: PEGASPARGASE
     Dates: end: 20170618

REACTIONS (8)
  - Sepsis [None]
  - Adrenal insufficiency [None]
  - Blood creatinine increased [None]
  - Vomiting [None]
  - Hypotension [None]
  - Acute kidney injury [None]
  - Nausea [None]
  - Pancreatitis acute [None]

NARRATIVE: CASE EVENT DATE: 20170704
